FAERS Safety Report 10746692 (Version 1)
Quarter: 2015Q1

REPORT INFORMATION
  Report Type: Report from Study
  Country: US (occurrence: US)
  Receive Date: 20150128
  Receipt Date: 20150128
  Transmission Date: 20150721
  Serious: Yes (Hospitalization)
  Sender: FDA-Public Use
  Company Number: US-ROCHE-1526143

PATIENT
  Age: 48 Year
  Sex: Female

DRUGS (5)
  1. TRASTUZUMAB [Suspect]
     Active Substance: TRASTUZUMAB
     Indication: HER-2 POSITIVE BREAST CANCER
     Route: 065
  2. PACLITAXEL. [Suspect]
     Active Substance: PACLITAXEL
     Indication: HER-2 POSITIVE BREAST CANCER
     Route: 065
  3. DECADRON [Concomitant]
     Active Substance: DEXAMETHASONE
  4. PERTUZUMAB [Suspect]
     Active Substance: PERTUZUMAB
     Indication: HER-2 POSITIVE BREAST CANCER
     Route: 065
  5. VANTIN (UNITED STATES) [Concomitant]

REACTIONS (1)
  - Pneumonitis [Recovering/Resolving]

NARRATIVE: CASE EVENT DATE: 20141115
